FAERS Safety Report 7521658-4 (Version None)
Quarter: 2011Q2

REPORT INFORMATION
  Report Type: 
  Country: None (occurrence: None)
  Receive Date: 20110603
  Receipt Date: 20110519
  Transmission Date: 20111010
  Serious: Yes (Death, Hospitalization, Other)
  Sender: FDA-Public Use
  Company Number: CA-JNJFOC-20100807916

PATIENT
  Sex: Female
  Weight: 55 kg

DRUGS (7)
  1. NORVASC [Concomitant]
     Indication: ILL-DEFINED DISORDER
  2. PANTOPRAZOLE SODIUM [Concomitant]
     Indication: ILL-DEFINED DISORDER
  3. PREDNISONE [Concomitant]
     Indication: ILL-DEFINED DISORDER
  4. AMITRIPTYLINE HCL [Concomitant]
     Indication: ILL-DEFINED DISORDER
  5. REMICADE [Suspect]
     Indication: RHEUMATOID ARTHRITIS
     Route: 042
     Dates: start: 20071001, end: 20100628
  6. ATENOLOL [Concomitant]
     Indication: ILL-DEFINED DISORDER
  7. METHOTREXATE [Concomitant]

REACTIONS (2)
  - GASTRIC CANCER [None]
  - CARDIAC ARREST [None]
